FAERS Safety Report 5018205-8 (Version None)
Quarter: 2006Q2

REPORT INFORMATION
  Report Type: 
  Country: None (occurrence: None)
  Receive Date: 20060530
  Receipt Date: 20060515
  Transmission Date: 20061013
  Serious: Yes (Death)
  Sender: FDA-Public Use
  Company Number: 2005120096

PATIENT
  Age: 74 Year
  Sex: Female
  Weight: 53.978 kg

DRUGS (7)
  1. BEXTRA [Suspect]
     Indication: RHEUMATOID ARTHRITIS
     Dosage: 20 MG (10 MG, 2 IN 1 D), UNKNOWN
     Route: 065
     Dates: start: 20010101, end: 20030803
  2. ADVIL [Concomitant]
  3. ALEVE [Concomitant]
  4. ASPIRIN [Concomitant]
  5. CELEBREX [Concomitant]
  6. ACETAMINOPHEN [Concomitant]
  7. VIOXX [Concomitant]

REACTIONS (2)
  - CEREBROVASCULAR ACCIDENT [None]
  - HAEMORRHAGE [None]
